FAERS Safety Report 6909704-X (Version None)
Quarter: 2010Q3

REPORT INFORMATION
  Report Type: 
  Country: None (occurrence: None)
  Receive Date: 20100805
  Receipt Date: 20100730
  Transmission Date: 20110219
  Serious: Yes (Other)
  Sender: FDA-Public Use
  Company Number: US-AMGEN-QUU423343

PATIENT
  Sex: Male

DRUGS (3)
  1. NPLATE [Suspect]
     Indication: IDIOPATHIC THROMBOCYTOPENIC PURPURA
     Dates: start: 20090521, end: 20100324
  2. CORTICOSTEROIDS [Concomitant]
  3. INTERFERON [Concomitant]

REACTIONS (1)
  - THROMBOCYTOPENIA [None]
